FAERS Safety Report 11693529 (Version 4)
Quarter: 2015Q4

REPORT INFORMATION
  Report Type: Spontaneous
  Country: IT (occurrence: IT)
  Receive Date: 20151103
  Receipt Date: 20151224
  Transmission Date: 20160304
  Serious: Yes (Hospitalization)
  Sender: FDA-Public Use
  Company Number: IT-SA-2015SA171903

PATIENT
  Age: 20 Year
  Sex: Female

DRUGS (4)
  1. FAMVIR /UNK/ [Concomitant]
     Indication: ANTIVIRAL PROPHYLAXIS
     Dates: start: 20151025, end: 20151129
  2. SOLU-MEDROL [Concomitant]
     Active Substance: METHYLPREDNISOLONE SODIUM SUCCINATE
     Indication: ANAPHYLAXIS PROPHYLAXIS
     Dosage: INJECTABLE SOLUTION
     Route: 042
     Dates: start: 20151026, end: 20151030
  3. LEMTRADA [Suspect]
     Active Substance: ALEMTUZUMAB
     Indication: MULTIPLE SCLEROSIS
     Route: 041
     Dates: start: 20151026, end: 20151030
  4. TRIMETON [Concomitant]
     Active Substance: CHLORPHENIRAMINE MALEATE
     Indication: ANAPHYLAXIS PROPHYLAXIS
     Dosage: INJECTABLE SOLUTION
     Route: 042
     Dates: start: 20151026, end: 20151030

REACTIONS (1)
  - Uhthoff^s phenomenon [Recovered/Resolved]

NARRATIVE: CASE EVENT DATE: 20151026
